FAERS Safety Report 13880981 (Version 1)
Quarter: 2017Q3

REPORT INFORMATION
  Report Type: Report from Study
  Country: US (occurrence: US)
  Receive Date: 20170818
  Receipt Date: 20170818
  Transmission Date: 20171127
  Serious: Yes (Death, Other)
  Sender: FDA-Public Use
  Company Number: US-ROCHE-1978188

PATIENT

DRUGS (7)
  1. ETOPOSIDE. [Suspect]
     Active Substance: ETOPOSIDE
     Indication: DIFFUSE LARGE B-CELL LYMPHOMA
     Dosage: TWICE A DAY ON DAYS -5 TO -2 (TOTAL 8 DOSES).
     Route: 042
  2. CARMUSTINE [Suspect]
     Active Substance: CARMUSTINE
     Indication: DIFFUSE LARGE B-CELL LYMPHOMA
     Dosage: OVER 1 HOUR ON DAY -6
     Route: 042
  3. MELPHALAN. [Suspect]
     Active Substance: MELPHALAN
     Indication: DIFFUSE LARGE B-CELL LYMPHOMA
     Dosage: ON DAY -1.
     Route: 042
  4. FILGRASTIM [Concomitant]
     Active Substance: FILGRASTIM
     Indication: PROPHYLAXIS
     Dosage: BEGINNING ON DAY +1 UNTIL HAEMATOLOGICAL RECOVERY.
     Route: 058
  5. RITUXIMAB. [Suspect]
     Active Substance: RITUXIMAB
     Indication: DIFFUSE LARGE B-CELL LYMPHOMA
     Dosage: ADMINISTERED ON DAYS +1 AND +8 AFTER STEM CELL INFUSION.
     Route: 042
  6. RITUXIMAB. [Suspect]
     Active Substance: RITUXIMAB
     Dosage: ADMINISTERED ON DAYS +1 AND +8 AFTER STEM CELL INFUSION.
     Route: 042
  7. CYTARABINE. [Suspect]
     Active Substance: CYTARABINE
     Indication: DIFFUSE LARGE B-CELL LYMPHOMA
     Dosage: TWICE A DAY ON DAYS -5 TO -2 (TOTAL 8 DOSES).
     Route: 042

REACTIONS (22)
  - Confusional state [Unknown]
  - Dyspnoea [Unknown]
  - Pyrexia [Unknown]
  - Second primary malignancy [Fatal]
  - Cardiac failure congestive [Unknown]
  - Myelodysplastic syndrome [Unknown]
  - Lung neoplasm malignant [Unknown]
  - Lethargy [Unknown]
  - Mucosal inflammation [Unknown]
  - Neuralgia [Unknown]
  - Intestinal obstruction [Unknown]
  - Alanine aminotransferase increased [Unknown]
  - Infection [Fatal]
  - Blood bilirubin abnormal [Unknown]
  - Nausea [Unknown]
  - Hypercalcaemia [Unknown]
  - Febrile neutropenia [Unknown]
  - Acute respiratory failure [Unknown]
  - Atrial fibrillation [Unknown]
  - Deep vein thrombosis [Unknown]
  - Diarrhoea [Unknown]
  - Rash [Unknown]
